FAERS Safety Report 12329157 (Version 1)
Quarter: 2016Q2

REPORT INFORMATION
  Report Type: Report from Study
  Country: BR (occurrence: BR)
  Receive Date: 20160503
  Receipt Date: 20160503
  Transmission Date: 20160815
  Serious: Yes (Other)
  Sender: FDA-Public Use
  Company Number: PHHY2016BR059795

PATIENT
  Sex: Male
  Weight: 78 kg

DRUGS (1)
  1. EXELON PATCH [Suspect]
     Active Substance: RIVASTIGMINE
     Indication: MEMORY IMPAIRMENT
     Dosage: 4.6 MG [PATCH 5 (CM)2], QD
     Route: 062
     Dates: start: 20160416

REACTIONS (3)
  - Product use issue [Unknown]
  - Cardiac disorder [Unknown]
  - Wrong technique in product usage process [Unknown]
